FAERS Safety Report 11749862 (Version 1)
Quarter: 2015Q4

REPORT INFORMATION
  Report Type: Spontaneous
  Country: US (occurrence: None)
  Receive Date: 20151116
  Receipt Date: 20151116
  Transmission Date: 20160304
  Serious: Yes (Life-Threatening, Hospitalization)
  Sender: FDA-Public Use
  Company Number: None

PATIENT
  Age: 63 Year
  Sex: Male
  Weight: 79.5 kg

DRUGS (2)
  1. VIEKIRA PAK [Suspect]
     Active Substance: DASABUVIR\OMBITASVIR\PARITAPREVIR\RITONAVIR
     Indication: ACUTE KIDNEY INJURY
     Route: 048
     Dates: start: 20150908, end: 20151103
  2. RIBAVIRIN. [Suspect]
     Active Substance: RIBAVIRIN
     Indication: HEPATIC CIRRHOSIS
     Route: 048
     Dates: start: 20150908, end: 20151103

REACTIONS (11)
  - Malaise [None]
  - Chills [None]
  - Tremor [None]
  - Blood urea increased [None]
  - Fall [None]
  - Confusional state [None]
  - Dizziness [None]
  - Syncope [None]
  - Blood creatinine increased [None]
  - Hypotension [None]
  - Asthenia [None]

NARRATIVE: CASE EVENT DATE: 20151110
